FAERS Safety Report 5839304-4 (Version None)
Quarter: 2008Q3

REPORT INFORMATION
  Report Type: 
  Country: None (occurrence: None)
  Receive Date: 20080806
  Receipt Date: 20080728
  Transmission Date: 20090109
  Serious: Yes (Death)
  Sender: FDA-Public Use
  Company Number: GXKR2007GB05813

PATIENT
  Age: 75 Year
  Sex: Male
  Weight: 86 kg

DRUGS (3)
  1. SIMVASTATIN [Suspect]
     Indication: HYPERCHOLESTEROLAEMIA
     Dosage: 40 MG, ORAL
     Route: 048
     Dates: start: 20061211, end: 20061219
  2. CALCICHEW D3 (CALCIUM CARBONATE, COLECALCIFEROL) [Concomitant]
  3. OMEPRAZOLE [Concomitant]

REACTIONS (6)
  - ADVERSE DRUG REACTION [None]
  - BACTERIAL INFECTION [None]
  - DISSEMINATED INTRAVASCULAR COAGULATION [None]
  - DYSPEPSIA [None]
  - LIVER INJURY [None]
  - LUNG DISORDER [None]
